FAERS Safety Report 12209622 (Version 2)
Quarter: 2016Q1

REPORT INFORMATION
  Report Type: Spontaneous
  Country: GB (occurrence: GB)
  Receive Date: 20160325
  Receipt Date: 20160325
  Transmission Date: 20160526
  Serious: Yes (Death, Other)
  Sender: FDA-Public Use
  Company Number: GB-JNJFOC-20160314356

PATIENT
  Age: 52 Year
  Sex: Female

DRUGS (3)
  1. COUGH AND COLD PREPARATIONS [Suspect]
     Active Substance: UNSPECIFIED INGREDIENT
     Indication: INFLUENZA
     Route: 065
  2. PARACETAMOL [Suspect]
     Active Substance: ACETAMINOPHEN
     Route: 065
  3. PARACETAMOL [Suspect]
     Active Substance: ACETAMINOPHEN
     Indication: OSTEOPOROSIS
     Dosage: UNKNOWN
     Route: 065

REACTIONS (9)
  - Multiple organ dysfunction syndrome [Fatal]
  - Restlessness [Unknown]
  - Renal failure [Unknown]
  - Liver disorder [Unknown]
  - Hepatic failure [Unknown]
  - Product use issue [Fatal]
  - Somnolence [Unknown]
  - Overdose [Fatal]
  - Off label use [Fatal]

NARRATIVE: CASE EVENT DATE: 20091029
